FAERS Safety Report 6369367 (Version 3)
Quarter: 2013Q2

REPORT INFORMATION
  Report Type: Spontaneous
  Country: US (occurrence: US)
  Receive Date: 20070727
  Receipt Date: 20130521
  Transmission Date: 20140414
  Serious: Yes (Other)
  Sender: FDA-Public Use
  Company Number: US-PFIZER INC-2007031649

PATIENT
  Age: 55 Year
  Sex: Female
  Weight: 64 kg

DRUGS (3)
  1. CHANTIX [Suspect]
     Indication: SMOKING CESSATION THERAPY
     Dosage: UNK
     Dates: start: 20070130
  2. CHANTIX [Suspect]
     Dosage: UNK
  3. ALBUTEROL [Concomitant]
     Dosage: 1 PUFF; EVERY 4 HOURS AS NEEDED
     Route: 055

REACTIONS (12)
  - Haemorrhage [Unknown]
  - Haematochezia [Recovered/Resolved]
  - Anxiety [Unknown]
  - Drug ineffective [Unknown]
  - Abdominal pain [Recovered/Resolved]
  - Fatigue [Not Recovered/Not Resolved]
  - Depressed mood [Not Recovered/Not Resolved]
  - Apathy [Not Recovered/Not Resolved]
  - Fear [Unknown]
  - Hyperventilation [Unknown]
  - Palpitations [Unknown]
  - Paraesthesia [Unknown]
